FAERS Safety Report 17978521 (Version 1)
Quarter: 2020Q3

REPORT INFORMATION
  Report Type: Spontaneous
  Country: BR (occurrence: BR)
  Receive Date: 20200703
  Receipt Date: 20200703
  Transmission Date: 20201103
  Serious: Yes (Death, Hospitalization, Other)
  Sender: FDA-Public Use
  Company Number: BR-MICRO LABS LIMITED-ML2020-01914

PATIENT
  Age: 33 Year
  Sex: Male

DRUGS (7)
  1. TEMOZOLOMIDE. [Suspect]
     Active Substance: TEMOZOLOMIDE
  2. IRINOTECAN [Suspect]
     Active Substance: IRINOTECAN
  3. BEVACIZUMAB. [Suspect]
     Active Substance: BEVACIZUMAB
  4. CLOBAZAM. [Suspect]
     Active Substance: CLOBAZAM
  5. OXCARBAZEPINE. [Suspect]
     Active Substance: OXCARBAZEPINE
  6. COTRIMOXAZOLE [Suspect]
     Active Substance: SULFAMETHOXAZOLE\TRIMETHOPRIM
  7. DEXAMETHASONE. [Suspect]
     Active Substance: DEXAMETHASONE

REACTIONS (2)
  - Metastatic neoplasm [Fatal]
  - Glioblastoma [Fatal]
